FAERS Safety Report 9525131 (Version 2)
Quarter: 2013Q3

REPORT INFORMATION
  Report Type: Report from Study
  Country: FR (occurrence: FR)
  Receive Date: 20130916
  Receipt Date: 20130916
  Transmission Date: 20140515
  Serious: Yes (Death, Life-Threatening, Hospitalization, Other)
  Sender: FDA-Public Use
  Company Number: FR-VERTEX PHARMACEUTICALS INC-AE-2011-000432

PATIENT
  Age: 55 Year
  Sex: Male
  Weight: 88 kg

DRUGS (27)
  1. VX-950 (TELAPREVIR) [Suspect]
     Indication: HEPATITIS C
     Dosage: 750 MG, TID
     Dates: start: 20110509, end: 20110801
  2. PEGASYS [Suspect]
     Indication: HEPATITIS C
     Dosage: 90 ?G, QW
     Route: 058
     Dates: start: 20110509, end: 201109
  3. RIBAVIRIN [Suspect]
     Indication: HEPATITIS C
     Dosage: 200 MG, TID
     Route: 048
     Dates: start: 20110509, end: 201109
  4. TOPALGIC [Concomitant]
     Indication: OSTEOARTHRITIS
     Dosage: 50 MG, TID
     Dates: start: 201010, end: 2011
  5. TOPALGIC [Concomitant]
     Indication: PAIN
  6. SERESTA [Concomitant]
     Indication: ANXIETY
     Dosage: 50 MG, QD
     Dates: start: 200410, end: 2011
  7. SERESTA [Concomitant]
     Dosage: 10 MG, TID
     Dates: start: 2004, end: 2011
  8. EQUANIL [Concomitant]
     Indication: ANXIETY
     Dosage: 250 MG, BID
     Dates: start: 2004, end: 2011
  9. ATARAX [Concomitant]
     Indication: INSOMNIA
     Dosage: 12.5 MG, QD
     Route: 048
     Dates: start: 201109
  10. ATARAX [Concomitant]
     Indication: ANXIETY
     Dosage: 25 MG, UNK
     Route: 048
  11. NEORECORMON [Concomitant]
     Indication: ANAEMIA
     Dosage: 30000 IU, QW
     Dates: start: 20110804
  12. INEXIUM                            /01479302/ [Concomitant]
     Indication: ULCER
     Dosage: 40 MG, QD
     Dates: start: 201109
  13. KALEORID [Concomitant]
     Indication: BLOOD POTASSIUM
     Dosage: 1000 MG, TID
     Dates: start: 201109
  14. MOTILIUM [Concomitant]
     Indication: NAUSEA
     Dosage: 10 MG, BID
     Dates: start: 201109, end: 20110928
  15. RULID [Concomitant]
     Indication: ANTIBIOTIC THERAPY
     Dosage: 150 MG, BID
     Dates: start: 20110923, end: 20110928
  16. CORTANCYL [Concomitant]
     Indication: STEROID THERAPY
     Dosage: 20 MG, BID
     Dates: start: 201109
  17. AUGMENTIN [Concomitant]
     Indication: ANTIBIOTIC THERAPY
     Dosage: 100 MG, TID
     Dates: start: 20110923, end: 20110928
  18. SPECIAFOLDINE [Concomitant]
     Indication: PRODUCT USED FOR UNKNOWN INDICATION
     Dosage: 10 MG, TID
  19. SPECIAFOLDINE [Concomitant]
     Dosage: 50 MG, QD
  20. LASILIX [Concomitant]
     Indication: PRODUCT USED FOR UNKNOWN INDICATION
     Dosage: 40 MG, QD
  21. SMECTA [Concomitant]
     Indication: PRODUCT USED FOR UNKNOWN INDICATION
     Dosage: UNK, TID
  22. OMEPRAZOLE [Concomitant]
     Indication: PRODUCT USED FOR UNKNOWN INDICATION
     Dosage: 40 MG, QD
  23. ACUPAN [Concomitant]
     Indication: PRODUCT USED FOR UNKNOWN INDICATION
     Dosage: UNK, TID
  24. XATRAL [Concomitant]
     Indication: PRODUCT USED FOR UNKNOWN INDICATION
     Dosage: UNK, QD
  25. OXYCONTIN [Concomitant]
     Indication: PRODUCT USED FOR UNKNOWN INDICATION
     Dosage: 20 MG, TID
  26. OXYNORM [Concomitant]
     Indication: PRODUCT USED FOR UNKNOWN INDICATION
     Dosage: 5 MG, UNK (FOUR TIMES PER DAY)
  27. PARACETAMOL [Concomitant]
     Indication: PRODUCT USED FOR UNKNOWN INDICATION
     Dosage: 500 MG, TID

REACTIONS (7)
  - Bronchial carcinoma [Fatal]
  - Thrombocytopenia [Recovered/Resolved]
  - Anaemia [Recovered/Resolved]
  - Nausea [Unknown]
  - Asthenia [Unknown]
  - Pancytopenia [Unknown]
  - Neutropenia [Unknown]
